FAERS Safety Report 5508923-7 (Version None)
Quarter: 2007Q4

REPORT INFORMATION
  Report Type: 
  Country: None (occurrence: None)
  Receive Date: 20071031
  Receipt Date: 20070801
  Transmission Date: 20080405
  Serious: No
  Sender: FDA-Public Use
  Company Number: 2007PV033225

PATIENT
  Age: 48 Year
  Sex: Female

DRUGS (6)
  1. SYMLIN [Suspect]
     Indication: TYPE 1 DIABETES MELLITUS
     Dosage: 60 MCG;TID;SC ;30 MCG;TID;SC ; 15 MCG;SC
     Route: 058
     Dates: start: 20070401, end: 20070501
  2. SYMLIN [Suspect]
     Indication: TYPE 1 DIABETES MELLITUS
     Dosage: 60 MCG;TID;SC ;30 MCG;TID;SC ; 15 MCG;SC
     Route: 058
     Dates: start: 20070301
  3. SYMLIN [Suspect]
     Indication: TYPE 1 DIABETES MELLITUS
     Dosage: 60 MCG;TID;SC ;30 MCG;TID;SC ; 15 MCG;SC
     Route: 058
     Dates: start: 20070501
  4. INSULIN DETEMIR [Concomitant]
  5. JANUMET [Concomitant]
  6. LISINOPRIL [Concomitant]

REACTIONS (1)
  - INFECTED CYST [None]
